FAERS Safety Report 12133545 (Version 1)
Quarter: 2016Q1

REPORT INFORMATION
  Report Type: Report from Study
  Country: CA (occurrence: CA)
  Receive Date: 20160301
  Receipt Date: 20160301
  Transmission Date: 20160526
  Serious: Yes (Hospitalization)
  Sender: FDA-Public Use
  Company Number: CA-B.I. PHARMACEUTICALS,INC./RIDGEFIELD-2016-BI-07818CN

PATIENT
  Age: 81 Year
  Sex: Male

DRUGS (1)
  1. OFEV [Suspect]
     Active Substance: NINTEDANIB
     Indication: IDIOPATHIC PULMONARY FIBROSIS
     Dosage: 300 MG
     Route: 048
     Dates: start: 20151027, end: 20160203

REACTIONS (8)
  - Asthenia [Unknown]
  - Full blood count decreased [Unknown]
  - Loss of consciousness [Unknown]
  - Muscular weakness [Unknown]
  - Nasopharyngitis [Unknown]
  - Chest pain [Unknown]
  - Internal haemorrhage [Unknown]
  - Nausea [Unknown]
